FAERS Safety Report 7317311-2 (Version None)
Quarter: 2011Q1

REPORT INFORMATION
  Report Type: 
  Country: None (occurrence: None)
  Receive Date: 20110226
  Receipt Date: 20101022
  Transmission Date: 20110831
  Serious: No
  Sender: FDA-Public Use
  Company Number: US-ALLERGAN-1013639US

PATIENT
  Age: 44 Year
  Sex: Female

DRUGS (2)
  1. BOTOX COSMETIC [Suspect]
     Indication: PAIN IN JAW
  2. BOTOX COSMETIC [Suspect]
     Indication: SKIN WRINKLING
     Dosage: 36 UNITS, SINGLE
     Route: 030
     Dates: start: 20101020, end: 20101020

REACTIONS (5)
  - DRY EYE [None]
  - FOREIGN BODY SENSATION IN EYES [None]
  - EYE PAIN [None]
  - INFLUENZA LIKE ILLNESS [None]
  - HYPERVENTILATION [None]
